FAERS Safety Report 22081885 (Version 1)
Quarter: 2023Q1

REPORT INFORMATION
  Report Type: Report from Study
  Country: CO (occurrence: CO)
  Receive Date: 20230310
  Receipt Date: 20230310
  Transmission Date: 20230418
  Serious: Yes (Other)
  Sender: FDA-Public Use
  Company Number: CO-ABBVIE-4333792

PATIENT
  Age: 74 Year
  Sex: Female
  Weight: 43 kg

DRUGS (1)
  1. ZEMPLAR [Suspect]
     Active Substance: PARICALCITOL
     Indication: Hyperparathyroidism
     Dosage: FORM STRENGTH: 05  MICROGRAM
     Route: 042
     Dates: start: 20220803, end: 20230111

REACTIONS (2)
  - Arteriovenous fistula operation [Recovering/Resolving]
  - Blood pressure increased [Recovering/Resolving]

NARRATIVE: CASE EVENT DATE: 20230101
